FAERS Safety Report 23847511 (Version 1)
Quarter: 2024Q2

REPORT INFORMATION
  Report Type: Spontaneous
  Country: JP (occurrence: JP)
  Receive Date: 20240513
  Receipt Date: 20240513
  Transmission Date: 20240716
  Serious: Yes (Other)
  Sender: FDA-Public Use
  Company Number: JP-TEYRO-2024-TY-000155

PATIENT
  Age: 49 Year
  Sex: Male

DRUGS (4)
  1. CARBOPLATIN [Suspect]
     Active Substance: CARBOPLATIN
     Indication: Tracheal cancer
     Dosage: SIX WEEKLY, AREA UNDER THE CURVE 2, ON DAYS 1, 8, 15, 22, 29, AND 36
     Route: 065
  2. CARBOPLATIN [Suspect]
     Active Substance: CARBOPLATIN
     Indication: Tracheal cancer
  3. PACLITAXEL [Suspect]
     Active Substance: PACLITAXEL
     Indication: Tracheal cancer
     Dosage: SIX WEEKLY, 40 MG/M2 ON DAYS 1, 8, 15, 22, 29, AND 36
     Route: 065
  4. PACLITAXEL [Suspect]
     Active Substance: PACLITAXEL
     Indication: Tracheal cancer

REACTIONS (2)
  - Oesophagitis [Unknown]
  - Off label use [Unknown]
